FAERS Safety Report 5354154-3 (Version None)
Quarter: 2007Q2

REPORT INFORMATION
  Report Type: 
  Country: None (occurrence: None)
  Receive Date: 20070612
  Receipt Date: 20070529
  Transmission Date: 20071010
  Serious: Yes (Hospitalization)
  Sender: FDA-Public Use
  Company Number: IN-ELI_LILLY_AND_COMPANY-IN200705003335

PATIENT
  Age: 62 Year
  Sex: Female

DRUGS (4)
  1. HUMULIN 70/30 [Suspect]
     Indication: DIABETES MELLITUS NON-INSULIN-DEPENDENT
     Dosage: 14 U, EACH MORNING
     Route: 058
     Dates: end: 20070505
  2. HUMULIN 70/30 [Suspect]
     Dosage: 8 U, EACH EVENING
     Route: 058
     Dates: end: 20070505
  3. ACARBOSE [Concomitant]
     Dosage: UNK, 2/D
  4. PIOGLITAZONE [Concomitant]
     Dosage: 1-2 TABLETS DAILY

REACTIONS (3)
  - DISCOMFORT [None]
  - PRURITUS GENERALISED [None]
  - RESTLESSNESS [None]
